FAERS Safety Report 19685824 (Version 1)
Quarter: 2021Q3

REPORT INFORMATION
  Report Type: Report from Study
  Country: US (occurrence: AU)
  Receive Date: 20210811
  Receipt Date: 20210811
  Transmission Date: 20211014
  Serious: Yes (Other)
  Sender: FDA-Public Use
  Company Number: US-MYLANLABS-2021M1050453

PATIENT
  Age: 38 Year
  Sex: Female

DRUGS (4)
  1. AMPICILLIN [Suspect]
     Active Substance: AMPICILLIN
     Indication: SKIN TEST
     Dosage: DOSE: 25MG/ML
     Route: 065
  2. PIPERACILLIN/TAZOBACTAM [Suspect]
     Active Substance: PIPERACILLIN SODIUM\TAZOBACTAM SODIUM
     Indication: SKIN TEST
     Dosage: DOSE: 4.5MG/ML
     Route: 065
  3. PENICILLIN G                       /00000901/ [Suspect]
     Active Substance: PENICILLIN G
     Dosage: DOSE: 1000IU/ML
     Route: 023
  4. PENICILLIN G                       /00000901/ [Suspect]
     Active Substance: PENICILLIN G
     Indication: SKIN TEST
     Dosage: DOSE: 10000IU/ML
     Route: 065

REACTIONS (1)
  - Type IV hypersensitivity reaction [Unknown]
